FAERS Safety Report 9160490 (Version 1)
Quarter: 2013Q1

REPORT INFORMATION
  Report Type: Spontaneous
  Country: US (occurrence: US)
  Receive Date: 20130313
  Receipt Date: 20130313
  Transmission Date: 20140127
  Serious: No
  Sender: FDA-Public Use
  Company Number: US-ABBOTT-13P-163-1050484-00

PATIENT
  Age: 87 Year
  Sex: Female
  Weight: 49.03 kg

DRUGS (2)
  1. DEPAKOTE [Suspect]
     Indication: MIGRAINE
     Dates: start: 20111205
  2. DEPAKOTE [Suspect]

REACTIONS (7)
  - Unevaluable event [Unknown]
  - Eye pruritus [Unknown]
  - Local swelling [Unknown]
  - Somnolence [Unknown]
  - Mood swings [Unknown]
  - Loss of consciousness [Unknown]
  - Speech disorder [Unknown]
